FAERS Safety Report 14180457 (Version 1)
Quarter: 2017Q4

REPORT INFORMATION
  Report Type: Report from Study
  Country: JP (occurrence: JP)
  Receive Date: 20171110
  Receipt Date: 20171110
  Transmission Date: 20180321
  Serious: Yes (Death, Other)
  Sender: FDA-Public Use
  Company Number: JP-DSJP-DSJ-2017-153407

PATIENT

DRUGS (4)
  1. EDOXABAN [Suspect]
     Active Substance: EDOXABAN TOSYLATE
     Indication: ATRIAL FIBRILLATION
     Dosage: 30 MG, QD
     Route: 048
     Dates: start: 20170616, end: 20170623
  2. AMIODARONE [Concomitant]
     Active Substance: AMIODARONE
     Dosage: 600MG/DAY
     Route: 042
     Dates: start: 20170619, end: 20170628
  3. EFIENT [Suspect]
     Active Substance: PRASUGREL HYDROCHLORIDE
     Indication: PRODUCT USED FOR UNKNOWN INDICATION
     Dosage: 3.75 MG, QD
     Route: 048
     Dates: start: 20170528, end: 20170717
  4. BUFFERIN [Suspect]
     Active Substance: ASPIRIN
     Dosage: 81MG/DAY
     Route: 048
     Dates: start: 20170528, end: 20170717

REACTIONS (2)
  - Gastrointestinal necrosis [Fatal]
  - Rectal haemorrhage [Recovered/Resolved]

NARRATIVE: CASE EVENT DATE: 20170619
